FAERS Safety Report 15468998 (Version 1)
Quarter: 2018Q4

REPORT INFORMATION
  Report Type: Spontaneous
  Country: US (occurrence: US)
  Receive Date: 20181001
  Receipt Date: 20181001
  Transmission Date: 20190205
  Serious: No
  Sender: FDA-Public Use
  Company Number: None

PATIENT
  Age: 60 Year
  Sex: Female
  Weight: 121.11 kg

DRUGS (2)
  1. CIMZIA [Suspect]
     Active Substance: CERTOLIZUMAB PEGOL
     Indication: RHEUMATOID ARTHRITIS
     Dosage: INJECT 400MG (2 VIALS) SUBCUTANEOUSLY AT WEEKS 0, 2, \T\4 AS DIRECTED
     Route: 058
     Dates: start: 201809
  2. CIMZIA [Suspect]
     Active Substance: CERTOLIZUMAB PEGOL
     Indication: RHEUMATOID FACTOR POSITIVE
     Dosage: INJECT 400MG (2 VIALS) SUBCUTANEOUSLY AT WEEKS 0, 2, \T\4 AS DIRECTED
     Route: 058
     Dates: start: 201809

REACTIONS (1)
  - Muscle spasms [None]
